FAERS Safety Report 5371834-4 (Version None)
Quarter: 2007Q2

REPORT INFORMATION
  Report Type: 
  Country: None (occurrence: None)
  Receive Date: 20070627
  Receipt Date: 20070622
  Transmission Date: 20071010
  Serious: Yes (Other)
  Sender: FDA-Public Use
  Company Number: PHNU2007DE02241

PATIENT
  Age: 65 Year
  Sex: Male

DRUGS (3)
  1. VOLTAREN [Suspect]
     Indication: SPINAL DISORDER
     Dosage: UNK, PRN
     Route: 048
     Dates: end: 20070619
  2. THYROID PREPARATIONS [Concomitant]
  3. CORTISONE ACETATE [Concomitant]
     Indication: ASTHMA
     Dosage: 5 MG, QD

REACTIONS (2)
  - DIPLOPIA [None]
  - VISION BLURRED [None]
